FAERS Safety Report 10648361 (Version 3)
Quarter: 2015Q2

REPORT INFORMATION
  Report Type: Spontaneous
  Country: IT (occurrence: IT)
  Receive Date: 20141212
  Receipt Date: 20150409
  Transmission Date: 20150821
  Serious: Yes (Other)
  Sender: FDA-Public Use
  Company Number: IT-009507513-1412ITA003421

PATIENT
  Age: 66 Year
  Sex: Male
  Weight: 108 kg

DRUGS (5)
  1. ADVAGRAF [Concomitant]
     Active Substance: TACROLIMUS
     Dosage: 1 MG, UNK
     Route: 048
     Dates: start: 20120213, end: 20141202
  2. RIBAVIRIN. [Suspect]
     Active Substance: RIBAVIRIN
     Indication: CHRONIC HEPATITIS C
     Dosage: 600 MG, QD
     Route: 048
     Dates: start: 20130919, end: 20141113
  3. RIBAVIRIN. [Suspect]
     Active Substance: RIBAVIRIN
     Dosage: 200 MG, QD
     Route: 048
  4. SOFOSBUVIR [Suspect]
     Active Substance: SOFOSBUVIR
     Indication: CHRONIC HEPATITIS C
     Dosage: 400 MG, QD
     Route: 048
     Dates: start: 20130919, end: 20141113
  5. COUMADIN [Concomitant]
     Active Substance: WARFARIN SODIUM
     Dosage: 2 MG, UNK
     Route: 048
     Dates: start: 20101027, end: 20141202

REACTIONS (3)
  - Blood bilirubin increased [Recovered/Resolved]
  - Transaminases increased [Recovered/Resolved]
  - Hepatic encephalopathy [Recovered/Resolved]

NARRATIVE: CASE EVENT DATE: 20141113
